FAERS Safety Report 6095840-X (Version None)
Quarter: 2009Q1

REPORT INFORMATION
  Report Type: 
  Country: None (occurrence: None)
  Receive Date: 20090227
  Receipt Date: 20080708
  Transmission Date: 20090719
  Serious: No
  Sender: FDA-Public Use
  Company Number: A0734759A

PATIENT
  Age: 8 Year
  Sex: Male

DRUGS (3)
  1. LAMICTAL [Suspect]
     Indication: EPILEPSY
     Dosage: 25MG TWICE PER DAY
     Route: 048
     Dates: start: 20080510
  2. DEPAKOTE [Concomitant]
     Dosage: 250U TWICE PER DAY
     Route: 048
  3. TOPAMAX [Concomitant]
     Dosage: 100MG TWICE PER DAY
     Route: 048

REACTIONS (1)
  - RASH [None]
